FAERS Safety Report 21234437 (Version 1)
Quarter: 2022Q3

REPORT INFORMATION
  Report Type: Report from Study
  Country: AR (occurrence: AR)
  Receive Date: 20220820
  Receipt Date: 20220820
  Transmission Date: 20221027
  Serious: Yes (Other)
  Sender: FDA-Public Use
  Company Number: AR-ABBVIE-21K-007-4121069-00

PATIENT
  Age: 63 Year
  Sex: Female

DRUGS (1)
  1. HUMIRA [Suspect]
     Active Substance: ADALIMUMAB
     Indication: Rheumatoid arthritis
     Route: 058
     Dates: start: 20161108

REACTIONS (6)
  - Skin necrosis [Unknown]
  - Haematoma [Recovered/Resolved]
  - Peripheral swelling [Recovering/Resolving]
  - Immunodeficiency [Unknown]
  - Arthropod bite [Recovering/Resolving]
  - Bacterial infection [Unknown]

NARRATIVE: CASE EVENT DATE: 20211001
